FAERS Safety Report 4541054-1 (Version None)
Quarter: 2004Q4

REPORT INFORMATION
  Report Type: 
  Country: None (occurrence: None)
  Receive Date: 20041228
  Receipt Date: 20041210
  Transmission Date: 20050328
  Serious: Yes (Other)
  Sender: FDA-Public Use
  Company Number: DSA_25511_2004

PATIENT
  Age: 93 Year
  Sex: Female

DRUGS (1)
  1. RENIVACE [Suspect]
     Dosage: DF UNK
     Route: 065

REACTIONS (2)
  - APLASTIC ANAEMIA [None]
  - PANCYTOPENIA [None]
